FAERS Safety Report 8783044 (Version 3)
Quarter: 2014Q2

REPORT INFORMATION
  Report Type: Spontaneous
  Country: US (occurrence: US)
  Receive Date: 20120913
  Receipt Date: 20140110
  Transmission Date: 20141212
  Serious: Yes (Hospitalization, Other)
  Sender: FDA-Public Use
  Company Number: US-BRISTOL-MYERS SQUIBB COMPANY-16936650

PATIENT
  Age: 73 Year
  Sex: Female
  Weight: 84.35 kg

DRUGS (17)
  1. NULOJIX [Suspect]
     Indication: RENAL TRANSPLANT
     Route: 042
     Dates: start: 20120716, end: 20120813
  2. SOLIRIS [Suspect]
     Indication: HAEMOLYTIC URAEMIC SYNDROME
     Dosage: SINGLE,900 MG APR2012
     Route: 042
     Dates: start: 20120815
  3. AMLODIPINE [Concomitant]
  4. ACETYLSALICYLIC ACID [Concomitant]
  5. AZATHIOPRINE [Concomitant]
  6. CARDURA [Concomitant]
  7. LASIX [Concomitant]
  8. FISH OIL [Concomitant]
  9. NOVOLOG [Concomitant]
  10. LANTUS [Concomitant]
  11. METOPROLOL [Concomitant]
  12. PRILOSEC [Concomitant]
  13. PREDNISONE [Concomitant]
  14. BACTRIM [Concomitant]
  15. URSODIOL [Concomitant]
  16. VITAMIN D [Concomitant]
  17. AMBIEN [Concomitant]

REACTIONS (4)
  - Renal failure acute [Recovering/Resolving]
  - Coagulopathy [Unknown]
  - Thrombotic microangiopathy [Unknown]
  - Off label use [Unknown]
